FAERS Safety Report 15705626 (Version 3)
Quarter: 2019Q1

REPORT INFORMATION
  Report Type: Spontaneous
  Country: JP (occurrence: JP)
  Receive Date: 20181210
  Receipt Date: 20190128
  Transmission Date: 20190417
  Serious: Yes (Life-Threatening, Hospitalization, Other)
  Sender: FDA-Public Use
  Company Number: JP-JNJFOC-20181209081

PATIENT
  Age: 64 Year
  Sex: Male
  Weight: 97 kg

DRUGS (4)
  1. CANAGLU [Suspect]
     Active Substance: CANAGLIFLOZIN
     Indication: TYPE 2 DIABETES MELLITUS
     Route: 048
     Dates: start: 20151124, end: 20180930
  2. ATORVASTATIN [Concomitant]
     Active Substance: ATORVASTATIN
     Route: 048
     Dates: start: 20120522
  3. INISYNC [Concomitant]
     Indication: TYPE 2 DIABETES MELLITUS
     Route: 048
     Dates: start: 20180531
  4. LEVOTHYROXINE SODIUM. [Concomitant]
     Active Substance: LEVOTHYROXINE SODIUM
     Dosage: STARTED BEFORE 2009
     Route: 048

REACTIONS (4)
  - Rectal cancer [Recovered/Resolved with Sequelae]
  - Bacteriuria [Not Recovered/Not Resolved]
  - Peritonitis [Recovered/Resolved with Sequelae]
  - Leukocyturia [Recovering/Resolving]

NARRATIVE: CASE EVENT DATE: 20180530
